FAERS Safety Report 10330235 (Version 1)
Quarter: 2014Q3

REPORT INFORMATION
  Report Type: Spontaneous
  Country: US (occurrence: US)
  Receive Date: 20140721
  Receipt Date: 20140721
  Transmission Date: 20150326
  Serious: No
  Sender: FDA-Public Use
  Company Number: US-009507513-1407USA006981

PATIENT
  Sex: Female
  Weight: 45.35 kg

DRUGS (1)
  1. NEXPLANON [Suspect]
     Active Substance: ETONOGESTREL
     Dosage: UNK
     Route: 059
     Dates: start: 201307

REACTIONS (5)
  - Anaemia [Unknown]
  - Menorrhagia [Unknown]
  - Weight decreased [Unknown]
  - Feeling abnormal [Unknown]
  - Polymenorrhoea [Unknown]
